FAERS Safety Report 10507212 (Version 6)
Quarter: 2015Q1

REPORT INFORMATION
  Report Type: Spontaneous
  Country: DE (occurrence: DE)
  Receive Date: 20141009
  Receipt Date: 20150203
  Transmission Date: 20150720
  Serious: Yes (Hospitalization)
  Sender: FDA-Public Use
  Company Number: DE-BEH-2014045346

PATIENT
  Age: 61 Year
  Sex: Male

DRUGS (12)
  1. FADUL 40 [Concomitant]
  2. MARCUMAR [Concomitant]
     Active Substance: PHENPROCOUMON
  3. TORASEMID CT 5 MG [Concomitant]
  4. L-THYROXIN 50 HENNING [Concomitant]
  5. HIZENTRA [Suspect]
     Active Substance: HUMAN IMMUNOGLOBULIN G
     Indication: CHRONIC INFLAMMATORY DEMYELINATING POLYRADICULONEUROPATHY
     Route: 058
     Dates: start: 20140801
  6. MULTAQ 400 [Concomitant]
  7. EZETROL 10 MG [Concomitant]
  8. TROMCARDIN COMPLEX [Concomitant]
  9. HIZENTRA [Suspect]
     Active Substance: HUMAN IMMUNOGLOBULIN G
  10. LISINOPRIL RATIO 10 MG [Concomitant]
  11. HIZENTRA [Suspect]
     Active Substance: HUMAN IMMUNOGLOBULIN G
     Route: 058
     Dates: start: 20140920
  12. HIZENTRA [Suspect]
     Active Substance: HUMAN IMMUNOGLOBULIN G

REACTIONS (9)
  - Erythema [Not Recovered/Not Resolved]
  - Product quality issue [Unknown]
  - Skin bacterial infection [Not Recovered/Not Resolved]
  - Infusion site pain [Recovered/Resolved with Sequelae]
  - Skin warm [Not Recovered/Not Resolved]
  - Skin swelling [Not Recovered/Not Resolved]
  - Infusion site swelling [Recovered/Resolved with Sequelae]
  - Pain of skin [Not Recovered/Not Resolved]
  - Skin induration [Not Recovered/Not Resolved]

NARRATIVE: CASE EVENT DATE: 20140801
